FAERS Safety Report 8346420-4 (Version None)
Quarter: 2012Q2

REPORT INFORMATION
  Report Type: 
  Country: None (occurrence: None)
  Receive Date: 20120507
  Receipt Date: 20120507
  Transmission Date: 20120825
  Serious: No
  Sender: FDA-Public Use
  Company Number: None

PATIENT
  Age: 59 Year
  Sex: Female

DRUGS (1)
  1. ENBREL [Suspect]
     Dosage: 50 MG QW SQ
     Route: 058
     Dates: start: 20120101, end: 20120501

REACTIONS (4)
  - OEDEMA PERIPHERAL [None]
  - PYREXIA [None]
  - NAUSEA [None]
  - INFLUENZA LIKE ILLNESS [None]
